FAERS Safety Report 7522453-2 (Version None)
Quarter: 2011Q2

REPORT INFORMATION
  Report Type: 
  Country: None (occurrence: None)
  Receive Date: 20110603
  Receipt Date: 20110601
  Transmission Date: 20111010
  Serious: Yes (Hospitalization, Other)
  Sender: FDA-Public Use
  Company Number: CA-ABBOTT-11P-028-0729599-00

PATIENT
  Age: 32 Year
  Sex: Male

DRUGS (3)
  1. CLOPIXOL [Suspect]
     Indication: PRODUCT USED FOR UNKNOWN INDICATION
     Dosage: UNKNOWN
  2. DIVALPROEX SODIUM [Suspect]
     Indication: PRODUCT USED FOR UNKNOWN INDICATION
     Dosage: UNKNOWN
  3. CLOZARIL [Suspect]
     Indication: PRODUCT USED FOR UNKNOWN INDICATION
     Route: 048

REACTIONS (7)
  - PETIT MAL EPILEPSY [None]
  - HEART RATE INCREASED [None]
  - SPEECH DISORDER [None]
  - MOVEMENT DISORDER [None]
  - UNRESPONSIVE TO STIMULI [None]
  - BLOOD PRESSURE INCREASED [None]
  - SLEEP APNOEA SYNDROME [None]
